FAERS Safety Report 4717449-X (Version None)
Quarter: 2005Q3

REPORT INFORMATION
  Report Type: 
  Country: None (occurrence: None)
  Receive Date: 20050715
  Receipt Date: 20050706
  Transmission Date: 20060218
  Serious: Yes (Hospitalization, Other)
  Sender: FDA-Public Use
  Company Number: 2005071563

PATIENT
  Age: 6 Year
  Sex: Female

DRUGS (11)
  1. NEURONTIN [Suspect]
     Indication: CONVULSION
     Dosage: 300 MG (300 MG, 1 IN 1 D), ORAL
     Route: 048
     Dates: start: 19970101
  2. NEURONTIN [Suspect]
     Indication: INSOMNIA
     Dosage: 300 MG (300 MG, 1 IN 1 D), ORAL
     Route: 048
     Dates: start: 19970101
  3. LAMICTAL [Suspect]
     Indication: CONVULSION
     Dates: end: 20041231
  4. ZYPREXA [Suspect]
     Indication: BIPOLAR DISORDER
     Dates: start: 20041108, end: 20050110
  5. ZYPREXA [Suspect]
     Indication: SLEEP DISORDER
     Dates: start: 20041108, end: 20050110
  6. SEROQUEL [Suspect]
     Indication: BIPOLAR DISORDER
     Dosage: ORAL
     Route: 048
     Dates: start: 20050110
  7. SEROQUEL [Suspect]
     Indication: SLEEP DISORDER
     Dosage: ORAL
     Route: 048
     Dates: start: 20050110
  8. DEPAKOTE [Suspect]
     Indication: CONVULSION
     Dosage: ORAL
     Route: 048
  9. DEPAKENE [Concomitant]
  10. CLARITIN [Concomitant]
  11. VALPROIC ACID [Concomitant]

REACTIONS (16)
  - ABASIA [None]
  - ARTHRALGIA [None]
  - BEDRIDDEN [None]
  - BIPOLAR DISORDER [None]
  - CONDITION AGGRAVATED [None]
  - CONVULSION [None]
  - DIZZINESS [None]
  - DRUG INEFFECTIVE [None]
  - INCREASED APPETITE [None]
  - INSOMNIA [None]
  - MANIA [None]
  - METABOLIC DISORDER [None]
  - MIGRAINE [None]
  - SPEECH DISORDER [None]
  - SUICIDAL IDEATION [None]
  - WEIGHT INCREASED [None]
